FAERS Safety Report 8418927-2 (Version None)
Quarter: 2012Q2

REPORT INFORMATION
  Report Type: 
  Country: None (occurrence: None)
  Receive Date: 20120531
  Receipt Date: 20120518
  Transmission Date: 20120825
  Serious: Yes (Life-Threatening, Other)
  Sender: FDA-Public Use
  Company Number: 2012P1025950

PATIENT
  Age: 20 Year
  Sex: Male
  Weight: 74.8435 kg

DRUGS (12)
  1. VERSED [Concomitant]
  2. PROPOFOL [Concomitant]
  3. ANCEF [Concomitant]
  4. ZEMURON [Concomitant]
  5. FENTANYL [Concomitant]
  6. BUPIVICAINE/EPINEPHRINE [Concomitant]
  7. LIDOCAINE 1% [Concomitant]
  8. DEXAMETHASONE [Concomitant]
  9. ROBINUL [Suspect]
     Indication: INGUINAL HERNIA
     Dosage: 0.2 MG;X1;IV
     Route: 042
     Dates: start: 20120322, end: 20120322
  10. PEPCID [Concomitant]
  11. SUCCINYLCHOLINE CHLORIDE [Concomitant]
  12. SEVOFLURANE [Concomitant]

REACTIONS (7)
  - DEHYDRATION [None]
  - SINUS TACHYCARDIA [None]
  - CHEST PAIN [None]
  - DRY THROAT [None]
  - CARDIAC DISORDER [None]
  - PALPITATIONS [None]
  - HEART RATE IRREGULAR [None]
